FAERS Safety Report 11008758 (Version 2)
Quarter: 2015Q2

REPORT INFORMATION
  Report Type: Spontaneous
  Country: CA (occurrence: CA)
  Receive Date: 20150410
  Receipt Date: 20150609
  Transmission Date: 20150821
  Serious: Yes (Other)
  Sender: FDA-Public Use
  Company Number: CA-ABBVIE-15P-028-1373310-00

PATIENT
  Age: 52 Year
  Sex: Male

DRUGS (13)
  1. NORVIR [Suspect]
     Active Substance: RITONAVIR
     Indication: ANTIRETROVIRAL THERAPY
     Route: 065
     Dates: start: 20141023, end: 20141026
  2. PREZISTA [Interacting]
     Active Substance: DARUNAVIR ETHANOLATE
     Indication: ANTIRETROVIRAL THERAPY
     Route: 065
     Dates: start: 20141023, end: 20141026
  3. ABACAVIR [Concomitant]
     Active Substance: ABACAVIR
     Dates: start: 20141026
  4. ATORVASTATIN CALCIUM. [Interacting]
     Active Substance: ATORVASTATIN CALCIUM
     Indication: HYPERCHOLESTEROLAEMIA
     Dosage: 20MG EVERY 2 TO 3 DAYS
     Route: 065
     Dates: start: 201404
  5. NEVIRAPINE. [Concomitant]
     Active Substance: NEVIRAPINE
     Dates: start: 20141026
  6. INTELENCE [Interacting]
     Active Substance: ETRAVIRINE
     Indication: ANTIRETROVIRAL THERAPY
     Route: 065
     Dates: start: 20141023, end: 20141026
  7. ABACAVIR [Concomitant]
     Active Substance: ABACAVIR
     Indication: ANTIRETROVIRAL THERAPY
  8. DIDANOSINE. [Concomitant]
     Active Substance: DIDANOSINE
     Dates: start: 20141026
  9. FOSAMPRENAVIR [Concomitant]
     Active Substance: FOSAMPRENAVIR
     Indication: ANTIRETROVIRAL THERAPY
     Dates: end: 201410
  10. NEVIRAPINE. [Concomitant]
     Active Substance: NEVIRAPINE
     Indication: ANTIRETROVIRAL THERAPY
     Dates: end: 201410
  11. TRUVADA [Interacting]
     Active Substance: EMTRICITABINE\TENOFOVIR DISOPROXIL FUMARATE
     Indication: HIV INFECTION
     Route: 065
  12. FOSAMPRENAVIR [Concomitant]
     Active Substance: FOSAMPRENAVIR
     Dates: start: 20141026
  13. DIDANOSINE. [Concomitant]
     Active Substance: DIDANOSINE
     Indication: ANTIRETROVIRAL THERAPY
     Dates: end: 201410

REACTIONS (5)
  - Myalgia [Recovered/Resolved]
  - Drug interaction [Recovered/Resolved]
  - Rash [Recovered/Resolved]
  - Arthralgia [Recovered/Resolved]
  - Insomnia [Recovered/Resolved]

NARRATIVE: CASE EVENT DATE: 20141024
